FAERS Safety Report 5956110-0 (Version None)
Quarter: 2008Q4

REPORT INFORMATION
  Report Type: 
  Country: None (occurrence: None)
  Receive Date: 20081118
  Receipt Date: 20081110
  Transmission Date: 20090506
  Serious: Yes (Death, Hospitalization)
  Sender: FDA-Public Use
  Company Number: JP-JNJFOC-20080904521

PATIENT
  Sex: Male

DRUGS (13)
  1. REMICADE [Suspect]
     Route: 042
  2. REMICADE [Suspect]
     Indication: RHEUMATOID ARTHRITIS
     Route: 042
  3. PREDNISOLONE [Suspect]
     Indication: RHEUMATOID ARTHRITIS
     Route: 048
  4. RHEUMATREX [Suspect]
     Indication: RHEUMATOID ARTHRITIS
     Route: 048
  5. LANSOPRAZOLE [Concomitant]
     Indication: GASTRITIS PROPHYLAXIS
     Route: 048
  6. ZALTOPROFEN [Concomitant]
     Indication: RHEUMATOID ARTHRITIS
     Route: 048
  7. MUCOSTA [Concomitant]
     Indication: GASTROINTESTINAL DISORDER THERAPY
     Route: 048
  8. TAMBOCOR [Concomitant]
     Route: 042
  9. GLUCOSE [Concomitant]
     Route: 042
  10. VASOLAN [Concomitant]
     Route: 042
  11. PENTASA [Concomitant]
     Route: 048
  12. NOR-ADRENALIN [Concomitant]
  13. INOVAN [Concomitant]

REACTIONS (5)
  - AMYLOIDOSIS [None]
  - CARDIO-RESPIRATORY ARREST [None]
  - COLITIS ULCERATIVE [None]
  - GASTROENTERITIS SALMONELLA [None]
  - RENAL FAILURE ACUTE [None]
